FAERS Safety Report 7197290-1 (Version None)
Quarter: 2010Q4

REPORT INFORMATION
  Report Type: 
  Country: None (occurrence: None)
  Receive Date: 20101226
  Receipt Date: 20101216
  Transmission Date: 20110411
  Serious: Yes (Hospitalization, Other)
  Sender: FDA-Public Use
  Company Number: US-BRISTOL-MYERS SQUIBB COMPANY-15445364

PATIENT
  Age: 6 Year
  Sex: Male
  Weight: 27 kg

DRUGS (9)
  1. SPRYCEL [Suspect]
     Indication: ACUTE LYMPHOCYTIC LEUKAEMIA
     Dosage: HELD 4 DOSES 29OCT-01NOV10,60MG/M2 PO QD ON DAYS 1,14,15,28,29,42
     Route: 048
     Dates: start: 20100408, end: 20101028
  2. CYCLOPHOSPHAMIDE [Suspect]
     Indication: ACUTE LYMPHOCYTIC LEUKAEMIA
     Dosage: LAST DOSE:22OCT10,250MG/M2 IV OVER 1HR Q 12 HRS ON DAYS 3,4,300MG/M2 22,26,29,33,43,44
     Route: 042
     Dates: start: 20100408
  3. HYDROCORTISONE [Suspect]
     Indication: ACUTE LYMPHOCYTIC LEUKAEMIA
     Dosage: LAST DOSE:03NOV10,12MGHC GIVEN ON 03NOV10
     Dates: start: 20100408
  4. CYTARABINE [Suspect]
     Indication: ACUTE LYMPHOCYTIC LEUKAEMIA
     Dosage: LAST DOSE:03NOV10,24MG ON 03NOV10
     Dates: start: 20100408
  5. DAUNORUBICIN HCL [Suspect]
     Indication: ACUTE LYMPHOCYTIC LEUKAEMIA
     Dosage: LAST DOSE:20OCT10,25MG/M215MIN ON DAYS15,22, 45MG/M215MIN ON DAYS 1,2,
     Route: 042
     Dates: start: 20100408
  6. METHOTREXATE [Suspect]
     Indication: ACUTE LYMPHOCYTIC LEUKAEMIA
     Dosage: LAST DOSE:12MG OF IT-MTX GIVEN 03NOV10,20MG/M2 PO QD ON DAYS 8,15,22,29,36,43,50.
     Route: 048
     Dates: start: 20100408
  7. VINCRISTINE SULFATE [Suspect]
     Indication: ACUTE LYMPHOCYTIC LEUKAEMIA
     Dosage: INTR ON 03NOV10,DAY 8 VCR,1.4MG ON 03NOV10,DELAYED 2 DAYS,1.5MG/M2 1,8,15,22,29.
     Route: 042
     Dates: start: 20100408
  8. PEG-L-ASPARAGINASE [Suspect]
     Indication: ACUTE LYMPHOCYTIC LEUKAEMIA
     Dosage: 1 DF=2325 IUNIT/M2,LAST DOSE:22OCT10.
     Route: 030
     Dates: start: 20100408
  9. DEXAMETHASONE [Suspect]
     Indication: ACUTE LYMPHOCYTIC LEUKAEMIA
     Dosage: 03NOV10,05NOV10,3MG/M2 PO BID ON DAYS 1,7,5,15,21,29,33.
     Route: 048
     Dates: start: 20100408, end: 20101026

REACTIONS (4)
  - COLITIS [None]
  - FEBRILE NEUTROPENIA [None]
  - HYPOALBUMINAEMIA [None]
  - HYPOTENSION [None]
